FAERS Safety Report 9913154 (Version 5)
Quarter: 2014Q2

REPORT INFORMATION
  Report Type: Report from Study
  Country: CA (occurrence: CA)
  Receive Date: 20140220
  Receipt Date: 20140410
  Transmission Date: 20141212
  Serious: Yes (Other)
  Sender: FDA-Public Use
  Company Number: CA-ROCHE-1267788

PATIENT
  Sex: Female
  Weight: 54 kg

DRUGS (8)
  1. ACTEMRA [Suspect]
     Indication: RHEUMATOID ARTHRITIS
     Route: 042
     Dates: start: 20130516
  2. ACTEMRA [Suspect]
     Route: 042
     Dates: start: 20130516
  3. CELEBREX [Suspect]
     Indication: PRODUCT USED FOR UNKNOWN INDICATION
     Route: 065
  4. PLAQUENIL [Concomitant]
  5. RAMIPRIL [Concomitant]
  6. TYLENOL #3 (CANADA) [Concomitant]
  7. TYLENOL #2 (CANADA) [Concomitant]
  8. TYLENOL [Concomitant]

REACTIONS (4)
  - Pneumonia [Recovering/Resolving]
  - Rib fracture [Unknown]
  - Diarrhoea [Unknown]
  - Abdominal pain [Unknown]
